FAERS Safety Report 7552259-X (Version None)
Quarter: 2011Q2

REPORT INFORMATION
  Report Type: 
  Country: None (occurrence: None)
  Receive Date: 20110616
  Receipt Date: 20011005
  Transmission Date: 20111010
  Serious: Yes (Death, Other)
  Sender: FDA-Public Use
  Company Number: PHBS2001JP08994

PATIENT
  Sex: Female

DRUGS (2)
  1. SANDOSTATIN [Suspect]
     Indication: GASTRIC CANCER STAGE IV
     Dosage: 400 UG/DAY
     Route: 058
     Dates: start: 19980106, end: 19980111
  2. PRIMPERAN TAB [Concomitant]
     Dosage: 2 AMP/DAY
     Route: 042
     Dates: start: 19980106, end: 19980107

REACTIONS (8)
  - LOSS OF CONSCIOUSNESS [None]
  - BLOOD CALCIUM ABNORMAL [None]
  - BLOOD UREA INCREASED [None]
  - WHITE BLOOD CELL COUNT DECREASED [None]
  - CONDITION AGGRAVATED [None]
  - DEATH [None]
  - BLOOD CREATININE INCREASED [None]
  - MALAISE [None]
